FAERS Safety Report 5513684-1 (Version None)
Quarter: 2007Q4

REPORT INFORMATION
  Report Type: 
  Country: None (occurrence: None)
  Receive Date: 20071108
  Receipt Date: 20071024
  Transmission Date: 20080405
  Serious: Yes (Hospitalization)
  Sender: FDA-Public Use
  Company Number: ALA_00027_2007

PATIENT
  Age: 15 Year
  Sex: Female

DRUGS (2)
  1. MESALAMINE [Suspect]
     Indication: COLITIS ULCERATIVE
     Dosage: (500 MG TID ORAL)
     Route: 048
     Dates: start: 20030101
  2. PREDNISOLONE [Concomitant]

REACTIONS (22)
  - ACIDOSIS [None]
  - ANOREXIA [None]
  - ANTINEUTROPHIL CYTOPLASMIC ANTIBODY POSITIVE [None]
  - BETA 2 MICROGLOBULIN INCREASED [None]
  - BLOOD GLUCOSE INCREASED [None]
  - BLOOD POTASSIUM DECREASED [None]
  - BLOOD SODIUM DECREASED [None]
  - BLOOD URIC ACID DECREASED [None]
  - DEHYDRATION [None]
  - ELECTROLYTE IMBALANCE [None]
  - FATIGUE [None]
  - GLOMERULAR FILTRATION RATE INCREASED [None]
  - HYPERTONIA [None]
  - NEPHRITIS INTERSTITIAL [None]
  - POLYDIPSIA [None]
  - POLYURIA [None]
  - PROTEINURIA [None]
  - RED BLOOD CELLS URINE POSITIVE [None]
  - RENAL TUBULAR DISORDER [None]
  - SKIN TURGOR DECREASED [None]
  - ULTRASOUND KIDNEY ABNORMAL [None]
  - WHITE BLOOD CELLS URINE POSITIVE [None]
